FAERS Safety Report 5622994-9 (Version None)
Quarter: 2008Q1

REPORT INFORMATION
  Report Type: 
  Country: None (occurrence: None)
  Receive Date: 20080212
  Receipt Date: 20080204
  Transmission Date: 20080703
  Serious: Yes (Other)
  Sender: FDA-Public Use
  Company Number: JP-AVENTIS-200810355JP

PATIENT
  Age: 51 Year
  Sex: Female
  Weight: 60 kg

DRUGS (16)
  1. ARAVA [Suspect]
     Indication: RHEUMATOID ARTHRITIS
     Route: 048
     Dates: start: 20071010, end: 20071012
  2. ARAVA [Suspect]
     Route: 048
     Dates: start: 20071013, end: 20071025
  3. RHEUMATREX                         /00113801/ [Suspect]
     Indication: RHEUMATOID ARTHRITIS
     Dosage: DOSE: 10 MG/WK
     Route: 048
     Dates: start: 20050201, end: 20070509
  4. RHEUMATREX                         /00113801/ [Suspect]
     Dosage: DOSE: 12 MG/WK
     Route: 048
     Dates: start: 20070510
  5. RHEUMATREX                         /00113801/ [Suspect]
     Dosage: DOSE: 14 MG/WK
     Route: 048
     Dates: start: 20070621
  6. RHEUMATREX                         /00113801/ [Suspect]
     Dosage: DOSE: 16 MG/WK
     Route: 048
     Dates: start: 20070913, end: 20071010
  7. RHEUMATREX                         /00113801/ [Suspect]
     Dosage: DOSE: 12 MG/WK
     Route: 048
     Dates: start: 20071011
  8. FOLIAMIN [Concomitant]
     Dosage: DOSE: 5 MG/WEEK
     Route: 048
  9. BONALON [Concomitant]
     Indication: OSTEOPOROSIS
     Dosage: DOSE: 35 MG/WEEK
     Route: 048
  10. PREDNISOLONE [Concomitant]
     Indication: RHEUMATOID ARTHRITIS
     Route: 048
  11. MOBIC [Concomitant]
     Indication: PAIN
  12. GASTER D [Concomitant]
     Route: 048
  13. THYRADIN S [Concomitant]
     Indication: HYPOTHYROIDISM
     Route: 048
  14. GLYCYRON                           /00466401/ [Concomitant]
     Dosage: DOSE: 6 TBLS/DAY
     Route: 048
     Dates: start: 20071121, end: 20071225
  15. REMICADE [Concomitant]
     Indication: RHEUMATOID ARTHRITIS
     Dosage: DOSE: 200 MG/8 WEEKS
  16. QUESTRAN [Concomitant]
     Route: 048
     Dates: start: 20071031, end: 20071106

REACTIONS (2)
  - ALANINE AMINOTRANSFERASE INCREASED [None]
  - ASPARTATE AMINOTRANSFERASE INCREASED [None]
